FAERS Safety Report 25710166 (Version 1)
Quarter: 2025Q3

REPORT INFORMATION
  Report Type: Spontaneous
  Country: EU (occurrence: EU)
  Receive Date: 20250821
  Receipt Date: 20250821
  Transmission Date: 20251020
  Serious: Yes (Life-Threatening)
  Sender: RANBAXY
  Company Number: EU-SUN PHARMACEUTICAL INDUSTRIES LTD-2025RR-523323

PATIENT
  Age: 50 Year
  Sex: Female

DRUGS (6)
  1. GEMCITABINE [Suspect]
     Active Substance: GEMCITABINE
     Indication: Serous cystadenocarcinoma ovary
     Route: 040
     Dates: start: 202408, end: 202412
  2. CARBOPLATIN [Suspect]
     Active Substance: CARBOPLATIN
     Indication: Ovarian cancer
     Route: 040
     Dates: start: 2021, end: 2023
  3. PACLITAXEL [Suspect]
     Active Substance: PACLITAXEL
     Indication: Serous cystadenocarcinoma ovary
     Route: 040
     Dates: start: 2021, end: 2024
  4. LYNPARZA [Suspect]
     Active Substance: OLAPARIB
     Indication: Serous cystadenocarcinoma ovary
     Route: 040
     Dates: start: 2022, end: 2023
  5. BEVACIZUMAB [Suspect]
     Active Substance: BEVACIZUMAB
     Indication: Serous cystadenocarcinoma ovary
     Route: 040
     Dates: start: 202111, end: 202111
  6. DOXORUBICIN HYDROCHLORIDE [Suspect]
     Active Substance: DOXORUBICIN HYDROCHLORIDE
     Indication: Serous cystadenocarcinoma ovary
     Route: 040
     Dates: start: 202306, end: 202312

REACTIONS (1)
  - Acute myeloid leukaemia [Not Recovered/Not Resolved]

NARRATIVE: CASE EVENT DATE: 20250107
